FAERS Safety Report 7960762 (Version 9)
Quarter: 2012Q4

REPORT INFORMATION
  Report Type: 
  Country: US (occurrence: US)
  Receive Date: 20110525
  Receipt Date: 20121226
  Transmission Date: 20130627
  Serious: Yes (Hospitalization, Congenital Anomaly, Other)
  Sender: FDA-Public Use
  Company Number: US-PFIZER INC-2011105765

PATIENT
  Sex: Female
  Weight: 3.2 kg

DRUGS (11)
  1. ZOLOFT [Suspect]
     Indication: DEPRESSION
     Dosage: 100 mg, UNK
     Route: 064
     Dates: start: 2000
  2. ZOLOFT [Suspect]
     Indication: PANIC ATTACKS
     Dosage: 50 mg, per day
     Route: 064
     Dates: start: 200101
  3. PRENATAL VITAMINS [Concomitant]
     Dosage: UNK
     Route: 064
  4. CLONAZEPAM [Concomitant]
     Dosage: UNK
     Route: 064
  5. ENDOCET [Concomitant]
     Dosage: UNK
     Route: 064
  6. HYDROXYZINE [Concomitant]
     Dosage: UNK
     Route: 064
  7. IBUPROFEN [Concomitant]
     Dosage: UNK
     Route: 064
  8. MECLIZINE [Concomitant]
     Dosage: 12.5 mg, 3x/day
     Route: 064
  9. PRINCIPEN [Concomitant]
     Dosage: UNK
     Route: 064
  10. TRIMETHOBENZAMIDE [Concomitant]
     Dosage: UNK
     Route: 064
  11. ALPRAZOLAM [Concomitant]
     Dosage: UNK
     Route: 064

REACTIONS (12)
  - Foetal exposure during pregnancy [Unknown]
  - Transposition of the great vessels [Unknown]
  - Right ventricle outflow tract obstruction [Not Recovered/Not Resolved]
  - Atrial septal defect [Unknown]
  - Patent ductus arteriosus [Unknown]
  - Aortic valve incompetence [Not Recovered/Not Resolved]
  - Pulmonary artery stenosis congenital [Unknown]
  - Coronary artery disease [Unknown]
  - Right ventricular hypertrophy [Unknown]
  - Cyanosis [Unknown]
  - Cardiomegaly [Unknown]
  - Pulmonary valve stenosis [Not Recovered/Not Resolved]
